FAERS Safety Report 5567644-5 (Version None)
Quarter: 2007Q4

REPORT INFORMATION
  Report Type: 
  Country: None (occurrence: None)
  Receive Date: 20071219
  Receipt Date: 20071212
  Transmission Date: 20080405
  Serious: Yes (Hospitalization)
  Sender: FDA-Public Use
  Company Number: FR-PFIZER INC-2007104632

PATIENT
  Sex: Male

DRUGS (7)
  1. SOLU-MEDROL [Suspect]
     Indication: ANAESTHESIA
     Route: 042
  2. CETUXIMAB [Suspect]
     Route: 042
  3. OSMOTAN [Suspect]
     Indication: ANAESTHESIA
     Route: 042
  4. PRIMPERAN INJ [Suspect]
     Indication: ANAESTHESIA
     Route: 042
  5. RANIPLEX [Suspect]
     Indication: ANAESTHESIA
     Route: 042
  6. POLARAMINE [Suspect]
     Indication: ANAESTHESIA
     Route: 042
  7. DRUG, UNSPECIFIED [Concomitant]

REACTIONS (4)
  - ANAPHYLACTIC SHOCK [None]
  - CONVULSION [None]
  - HYPOTENSION [None]
  - LOSS OF CONSCIOUSNESS [None]
